FAERS Safety Report 5447695-1 (Version None)
Quarter: 2007Q3

REPORT INFORMATION
  Report Type: 
  Country: None (occurrence: None)
  Receive Date: 20070910
  Receipt Date: 20070904
  Transmission Date: 20080115
  Serious: Yes (Hospitalization)
  Sender: FDA-Public Use
  Company Number: IT-MERCK-0709ITA00002

PATIENT
  Age: 79 Year
  Sex: Female

DRUGS (4)
  1. HYZAAR [Suspect]
     Indication: HYPERTENSION
     Route: 048
     Dates: start: 20050521, end: 20050522
  2. METOCLOPRAMIDE HYDROCHLORIDE [Concomitant]
     Route: 065
  3. VALSARTAN [Concomitant]
     Route: 048
  4. ESOMEPRAZOLE MAGNESIUM [Concomitant]
     Route: 048

REACTIONS (4)
  - ASTHENIA [None]
  - DRUG ADMINISTRATION ERROR [None]
  - DYSPNOEA [None]
  - HYPOTENSION [None]
